FAERS Safety Report 18044583 (Version 1)
Quarter: 2020Q3

REPORT INFORMATION
  Report Type: Spontaneous
  Country: US (occurrence: US)
  Receive Date: 20200720
  Receipt Date: 20200720
  Transmission Date: 20201103
  Serious: No
  Sender: FDA-Public Use
  Company Number: None

PATIENT
  Age: 38 Year
  Sex: Female
  Weight: 66.6 kg

DRUGS (6)
  1. TIMOLOL MALEATE OPHTHALMIC SOLUTION, USP 0.5% [Suspect]
     Active Substance: TIMOLOL MALEATE
     Indication: GLAUCOMA
     Dosage: ?          QUANTITY:1 DROP(S);?
     Route: 047
     Dates: start: 20200612, end: 20200720
  2. IBUPROFEN. [Concomitant]
     Active Substance: IBUPROFEN
  3. METHYLPHENIDATE. [Concomitant]
     Active Substance: METHYLPHENIDATE
  4. RITUXAN [Concomitant]
     Active Substance: RITUXIMAB
  5. MULTIVITAMIN [Concomitant]
     Active Substance: VITAMINS
  6. PROBIOTICS [Concomitant]
     Active Substance: PROBIOTICS NOS

REACTIONS (1)
  - Instillation site pain [None]

NARRATIVE: CASE EVENT DATE: 20200612
